FAERS Safety Report 9201730 (Version 1)
Quarter: 2013Q2

REPORT INFORMATION
  Report Type: Spontaneous
  Country: ES (occurrence: ES)
  Receive Date: 20130401
  Receipt Date: 20130401
  Transmission Date: 20140414
  Serious: Yes (Other)
  Sender: FDA-Public Use
  Company Number: ES-ELI_LILLY_AND_COMPANY-ES201303009448

PATIENT
  Age: 85 Year
  Sex: Female

DRUGS (4)
  1. FORSTEO [Suspect]
     Indication: OSTEOPOROSIS POSTMENOPAUSAL
     Dosage: 20 UG, QD
     Dates: start: 20120804, end: 20120905
  2. OMEPRAZOLE [Concomitant]
     Dosage: 20 MG, QD
  3. BETAHISTINA [Concomitant]
     Dosage: 32 MG, QD
  4. ATENOLOL [Concomitant]
     Dosage: 12.5 MG, QD

REACTIONS (1)
  - Hepatic enzyme increased [Unknown]
